FAERS Safety Report 4662068-7 (Version None)
Quarter: 2005Q2

REPORT INFORMATION
  Report Type: 
  Country: None (occurrence: None)
  Receive Date: 20050516
  Receipt Date: 20050503
  Transmission Date: 20051028
  Serious: Yes (Other)
  Sender: FDA-Public Use
  Company Number: GB-JNJFOC-20050500668

PATIENT
  Sex: Male
  Weight: 109 kg

DRUGS (8)
  1. REMICADE [Suspect]
     Indication: RHEUMATOID ARTHRITIS
     Route: 042
  2. METHOTREXATE [Concomitant]
  3. AMITRIPTYLINE HCL TAB [Concomitant]
  4. LANSOPRAZOLE [Concomitant]
  5. FENTANYL [Concomitant]
  6. PIROXICAM [Concomitant]
  7. ATENOLOL [Concomitant]
  8. FOLIC ACID [Concomitant]

REACTIONS (2)
  - BASAL CELL CARCINOMA [None]
  - PAPILLOMA [None]
